FAERS Safety Report 9467736 (Version 4)
Quarter: 2013Q4

REPORT INFORMATION
  Report Type: Report from Study
  Country: CA (occurrence: CA)
  Receive Date: 20130821
  Receipt Date: 20131223
  Transmission Date: 20140711
  Serious: Yes (Hospitalization, Other)
  Sender: FDA-Public Use
  Company Number: CA-JNJFOC-20130808860

PATIENT
  Age: 14 Year
  Sex: Female
  Weight: 40 kg

DRUGS (7)
  1. REMICADE [Suspect]
     Indication: CROHN^S DISEASE
     Dosage: CURRENTLY RELOADING
     Route: 042
  2. REMICADE [Suspect]
     Indication: CROHN^S DISEASE
     Route: 042
     Dates: start: 20130723
  3. REMICADE [Suspect]
     Indication: CROHN^S DISEASE
     Route: 042
     Dates: start: 201202
  4. CIPRO [Concomitant]
     Route: 065
  5. FLAGYL [Concomitant]
     Route: 065
  6. SOLUCORTEF [Concomitant]
     Route: 042
  7. TYLENOL [Concomitant]
     Indication: PYREXIA
     Route: 048

REACTIONS (8)
  - Anorectal disorder [Unknown]
  - Colitis [Unknown]
  - Weight decreased [Unknown]
  - Fistula [Unknown]
  - Hypotension [Unknown]
  - Infection [Unknown]
  - Tachycardia [Unknown]
  - Pyrexia [Unknown]
